FAERS Safety Report 22315198 (Version 1)
Quarter: 2023Q2

REPORT INFORMATION
  Report Type: Spontaneous
  Country: CN (occurrence: CN)
  Receive Date: 20230512
  Receipt Date: 20230512
  Transmission Date: 20230722
  Serious: Yes (Life-Threatening, Hospitalization, Other)
  Sender: FDA-Public Use
  Company Number: CN-MLMSERVICE-20230501-4255965-1

PATIENT
  Age: 29 Year
  Sex: Female

DRUGS (1)
  1. DROSPIRENONE\ETHINYL ESTRADIOL [Suspect]
     Active Substance: DROSPIRENONE\ETHINYL ESTRADIOL
     Indication: Polycystic ovaries
     Dosage: 1 DF, QD
     Route: 048

REACTIONS (8)
  - Cerebral venous sinus thrombosis [Recovered/Resolved]
  - Sigmoid sinus thrombosis [Recovered/Resolved]
  - Superior sagittal sinus thrombosis [Recovered/Resolved]
  - Transverse sinus thrombosis [Recovered/Resolved]
  - Cerebral haemorrhage [Recovered/Resolved]
  - Cerebral infarction [Recovered/Resolved]
  - Generalised tonic-clonic seizure [Recovered/Resolved]
  - Off label use [None]
